FAERS Safety Report 19820322 (Version 2)
Quarter: 2021Q4

REPORT INFORMATION
  Report Type: Spontaneous
  Country: US (occurrence: US)
  Receive Date: 20210913
  Receipt Date: 20211230
  Transmission Date: 20220303
  Serious: No
  Sender: FDA-Public Use
  Company Number: US-BRISTOL-MYERS SQUIBB COMPANY-BMS-2021-091446

PATIENT
  Age: 53 Year
  Sex: Female

DRUGS (1)
  1. SPRYCEL [Suspect]
     Active Substance: DASATINIB
     Indication: Leukaemia
     Dosage: 100 MILLIGRAM, QD
     Route: 048
     Dates: start: 20210819

REACTIONS (10)
  - Rash [Unknown]
  - Headache [Unknown]
  - Swelling [Unknown]
  - Nausea [Unknown]
  - Fatigue [Unknown]
  - Ocular hyperaemia [Unknown]
  - Epistaxis [Unknown]
  - Constipation [Unknown]
  - Pruritus [Unknown]
  - Asthenia [Unknown]
